FAERS Safety Report 8775833 (Version 1)
Quarter: 2012Q4

REPORT INFORMATION
  Report Type: 
  Country: US (occurrence: US)
  Receive Date: 20120910
  Receipt Date: 20120910
  Transmission Date: 20130627
  Serious: No
  Sender: FDA-Public Use
  Company Number: US-PFIZER INC-2012221010

PATIENT
  Age: 50 Year
  Sex: Female
  Weight: 84.35 kg

DRUGS (8)
  1. LYRICA [Suspect]
     Indication: FIBROMYALGIA
     Dosage: 75 mg, 2x/day
     Route: 048
     Dates: start: 20120622
  2. PRAVASTATIN [Concomitant]
     Indication: BLOOD CHOLESTEROL INCREASED
     Dosage: 40 mg, 1x/day
  3. CHLORTHALIDONE [Concomitant]
     Indication: HYPERTENSION
     Dosage: 12.5 mg, UNK
  4. PAXIL [Concomitant]
     Dosage: 20 mg, 1x/day
  5. FLEXERIL [Concomitant]
     Indication: MUSCLE SPASMS
     Dosage: 10 mg, as needed
  6. IBUPROFEN [Concomitant]
     Dosage: 100 mg, 3x/day
  7. ASPIRIN [Concomitant]
     Dosage: 100 mg, UNK
  8. PSEUDOEPHEDRINE [Concomitant]
     Indication: SINUS CONGESTION
     Dosage: 30 mg, UNK

REACTIONS (7)
  - Blood cholesterol increased [Unknown]
  - Muscular weakness [Not Recovered/Not Resolved]
  - Hypoaesthesia [Not Recovered/Not Resolved]
  - Paraesthesia [Not Recovered/Not Resolved]
  - Pain [Not Recovered/Not Resolved]
  - Muscle disorder [Not Recovered/Not Resolved]
  - Fear [Not Recovered/Not Resolved]
